FAERS Safety Report 23660903 (Version 1)
Quarter: 2024Q1

REPORT INFORMATION
  Report Type: Spontaneous
  Country: FR (occurrence: FR)
  Receive Date: 20240322
  Receipt Date: 20240322
  Transmission Date: 20240409
  Serious: Yes (Hospitalization, Other)
  Sender: FDA-Public Use
  Company Number: FR-AFSSAPS-TO2024000429

PATIENT
  Age: 91 Year
  Sex: Female
  Weight: 63 kg

DRUGS (1)
  1. RALOXIFENE [Suspect]
     Active Substance: RALOXIFENE
     Indication: Osteoporosis prophylaxis
     Dosage: 60 MILLIGRAM, ONCE A DAY
     Route: 048
     Dates: end: 20240111

REACTIONS (1)
  - Ischaemic stroke [Recovering/Resolving]

NARRATIVE: CASE EVENT DATE: 20240107
